FAERS Safety Report 15364537 (Version 2)
Quarter: 2018Q4

REPORT INFORMATION
  Report Type: Spontaneous
  Country: GB (occurrence: GB)
  Receive Date: 20180909
  Receipt Date: 20181018
  Transmission Date: 20190204
  Serious: Yes (Other)
  Sender: FDA-Public Use
  Company Number: GB-009507513-1809GBR001650

PATIENT
  Sex: Female
  Weight: 63 kg

DRUGS (1)
  1. NEXPLANON [Suspect]
     Active Substance: ETONOGESTREL
     Indication: CONTRACEPTION
     Dosage: 1 DF, UNK
     Route: 059
     Dates: start: 2015, end: 20161116

REACTIONS (2)
  - Complication associated with device [Recovered/Resolved]
  - Device embolisation [Recovered/Resolved]
